FAERS Safety Report 8488607-6 (Version None)
Quarter: 2012Q3

REPORT INFORMATION
  Report Type: 
  Country: None (occurrence: None)
  Receive Date: 20120705
  Receipt Date: 20120630
  Transmission Date: 20120928
  Serious: Yes (Other)
  Sender: FDA-Public Use
  Company Number: PHHY2011CA64223

PATIENT
  Sex: Female

DRUGS (8)
  1. ZOLEDRONOC ACID [Suspect]
     Dosage: 5 MG, UNK
     Route: 042
     Dates: start: 20120627
  2. SERTRALINE HYDROCHLORIDE [Concomitant]
     Dosage: 25 MG, QD
  3. RABEPRAZOLE SODIUM [Concomitant]
     Dosage: 20 MG, QD
  4. ZOLEDRONOC ACID [Suspect]
     Indication: OSTEOPOROSIS
     Dosage: 5 MG, UNK
     Route: 042
     Dates: start: 20110624
  5. ENALAPRIL MALEATE [Concomitant]
     Dosage: 10 MG, QD
  6. ZOPICLONE [Concomitant]
     Dosage: 7.5 MG, UNK
  7. ACETAMINOPHEN [Concomitant]
  8. HYDROCHLOROTHIAZIDE [Concomitant]
     Dosage: 25 MG, QD

REACTIONS (11)
  - PARAESTHESIA [None]
  - MUSCULOSKELETAL PAIN [None]
  - BACK PAIN [None]
  - MYALGIA [None]
  - PAIN [None]
  - ARTHRALGIA [None]
  - INFLUENZA LIKE ILLNESS [None]
  - HYPOAESTHESIA [None]
  - BLOOD URINE PRESENT [None]
  - BONE PAIN [None]
  - MUSCLE SPASMS [None]
